FAERS Safety Report 6248659-0 (Version None)
Quarter: 2009Q2

REPORT INFORMATION
  Report Type: 
  Country: None (occurrence: None)
  Receive Date: 20090629
  Receipt Date: 20090624
  Transmission Date: 20091009
  Serious: Yes (Other)
  Sender: FDA-Public Use
  Company Number: CA-B.I. PHARMACEUTICALS,INC./RIDGEFIELD-2009-CN-00467CN

PATIENT
  Age: 58 Year
  Sex: Male

DRUGS (5)
  1. SPIRIVA [Suspect]
     Indication: CHRONIC OBSTRUCTIVE PULMONARY DISEASE
  2. CRESTOR [Concomitant]
     Dates: start: 20040101
  3. ACCUPRIL [Concomitant]
     Dates: start: 20040101
  4. HYDROCHLORO [Concomitant]
     Dates: start: 20040101
  5. NORVASC [Concomitant]
     Dates: start: 20040101

REACTIONS (4)
  - BRONCHOSPASM [None]
  - CHEST DISCOMFORT [None]
  - DYSPNOEA [None]
  - VOMITING [None]
